FAERS Safety Report 7936090-9 (Version None)
Quarter: 2011Q4

REPORT INFORMATION
  Report Type: 
  Country: None (occurrence: None)
  Receive Date: 20111123
  Receipt Date: 20111115
  Transmission Date: 20120403
  Serious: Yes (Hospitalization, Other)
  Sender: FDA-Public Use
  Company Number: US-JNJFOC-20111106650

PATIENT
  Age: 59 Year
  Sex: Male

DRUGS (1)
  1. REMICADE [Suspect]
     Indication: ANKYLOSING SPONDYLITIS
     Route: 042

REACTIONS (4)
  - INTESTINAL ULCER [None]
  - FUNGAL INFECTION [None]
  - INTESTINAL OPERATION [None]
  - INTESTINAL OBSTRUCTION [None]
